FAERS Safety Report 13329797 (Version 1)
Quarter: 2017Q1

REPORT INFORMATION
  Report Type: Spontaneous
  Country: US (occurrence: US)
  Receive Date: 20170313
  Receipt Date: 20170313
  Transmission Date: 20170428
  Serious: No
  Sender: FDA-Public Use
  Company Number: US-SHIRE-US201704619

PATIENT
  Sex: Female

DRUGS (2)
  1. XIIDRA [Suspect]
     Active Substance: LIFITEGRAST
     Indication: DRY EYE
     Dosage: 1 GTT (IN BOTH EYES), 2X/DAY:BID
     Route: 047
     Dates: start: 201701, end: 201701
  2. XIIDRA [Suspect]
     Active Substance: LIFITEGRAST
     Indication: KERATITIS

REACTIONS (2)
  - Instillation site reaction [Unknown]
  - Instillation site pain [Unknown]

NARRATIVE: CASE EVENT DATE: 201701
